FAERS Safety Report 9967700 (Version 1)
Quarter: 2014Q1

REPORT INFORMATION
  Report Type: Spontaneous
  Country: US (occurrence: US)
  Receive Date: 20140306
  Receipt Date: 20140306
  Transmission Date: 20141002
  Serious: Yes (Other)
  Sender: FDA-Public Use
  Company Number: PHEH2014US004210

PATIENT
  Sex: Female

DRUGS (2)
  1. DIOVAN HCT [Suspect]
     Dosage: 1 DF (160 MG VALA/25 MG HCT), UKN
  2. COMBIGAN [Suspect]
     Dosage: UNK UKN, UNK

REACTIONS (7)
  - Glaucoma [Unknown]
  - Visual acuity reduced [Unknown]
  - Anaemia [Unknown]
  - Peripheral coldness [Unknown]
  - Fatigue [Unknown]
  - Confusional state [Unknown]
  - Depressed mood [Unknown]
